FAERS Safety Report 16608816 (Version 1)
Quarter: 2019Q3

REPORT INFORMATION
  Report Type: Spontaneous
  Country: JP (occurrence: JP)
  Receive Date: 20190722
  Receipt Date: 20190722
  Transmission Date: 20191004
  Serious: Yes (Life-Threatening, Hospitalization)
  Sender: FDA-Public Use
  Company Number: JP-TEVA-2019-JP-1081467

PATIENT
  Age: 66 Year
  Sex: Male
  Weight: 62 kg

DRUGS (2)
  1. QUETIAPINE. [Suspect]
     Active Substance: QUETIAPINE
     Dosage: 25 MILLIGRAM DAILY;
     Route: 065
     Dates: start: 201708
  2. QUETIAPINE. [Suspect]
     Active Substance: QUETIAPINE
     Indication: DELIRIUM
     Dosage: 12.5 MILLIGRAM DAILY;
     Route: 065
     Dates: start: 201707

REACTIONS (16)
  - Type 2 diabetes mellitus [Recovering/Resolving]
  - Diabetic retinopathy [Recovering/Resolving]
  - Gastrointestinal disorder [Recovering/Resolving]
  - Emphysema [Recovering/Resolving]
  - Gastrointestinal oedema [Recovering/Resolving]
  - Intestinal ischaemia [Recovering/Resolving]
  - Diabetic nephropathy [Recovering/Resolving]
  - Diabetic ketoacidosis [Recovering/Resolving]
  - Gastrointestinal erosion [Recovering/Resolving]
  - Small intestine ulcer [Recovering/Resolving]
  - Diabetic neuropathy [Recovering/Resolving]
  - Fall [Recovering/Resolving]
  - Small intestinal perforation [Recovering/Resolving]
  - Gastrointestinal necrosis [Recovering/Resolving]
  - Dizziness [Recovering/Resolving]
  - Intestinal haemorrhage [Recovering/Resolving]
